FAERS Safety Report 24313808 (Version 1)
Quarter: 2024Q3

REPORT INFORMATION
  Report Type: Spontaneous
  Country: US (occurrence: US)
  Receive Date: 20240912
  Receipt Date: 20240912
  Transmission Date: 20241016
  Serious: Yes (Death, Other)
  Sender: PFIZER
  Company Number: US-BRISTOL-MYERS SQUIBB COMPANY-2024-140993

PATIENT
  Age: 68 Year
  Sex: Female

DRUGS (6)
  1. ELIQUIS [Suspect]
     Active Substance: APIXABAN
     Indication: Atrial fibrillation
     Dosage: 5 MG, 2X/DAY
  2. TIKOSYN [Suspect]
     Active Substance: DOFETILIDE
     Dosage: 0.125 MG, 2X/DAY
     Route: 048
     Dates: start: 20220315, end: 20240415
  3. TIKOSYN [Suspect]
     Active Substance: DOFETILIDE
     Dosage: 0.25 MG
     Dates: start: 20230609
  4. TIKOSYN [Suspect]
     Active Substance: DOFETILIDE
     Dosage: 250 UG, 2X/DAY
     Route: 048
  5. METOPROLOL SUCCINATE [Concomitant]
     Active Substance: METOPROLOL SUCCINATE
     Indication: Atrial fibrillation
     Dosage: 50 MG, 2X/DAY
  6. ISOSORBIDE [Concomitant]
     Active Substance: ISOSORBIDE

REACTIONS (1)
  - Death [Fatal]

NARRATIVE: CASE EVENT DATE: 20240415
